FAERS Safety Report 6506789-X (Version None)
Quarter: 2009Q4

REPORT INFORMATION
  Report Type: 
  Country: None (occurrence: None)
  Receive Date: 20091216
  Receipt Date: 20091210
  Transmission Date: 20100525
  Serious: Yes (Death)
  Sender: FDA-Public Use
  Company Number: 2009US004374

PATIENT
  Age: 92 Year
  Sex: Male

DRUGS (1)
  1. LEXISCAN [Suspect]
     Indication: SCAN MYOCARDIAL PERFUSION
     Dosage: IV NOS
     Route: 042
     Dates: start: 20091130, end: 20091130

REACTIONS (3)
  - ACUTE MYOCARDIAL INFARCTION [None]
  - ASTHENIA [None]
  - MALAISE [None]
